FAERS Safety Report 22168617 (Version 2)
Quarter: 2023Q2

REPORT INFORMATION
  Report Type: Spontaneous
  Country: US (occurrence: US)
  Receive Date: 20230403
  Receipt Date: 20230515
  Transmission Date: 20230721
  Serious: Yes (Hospitalization)
  Sender: FDA-Public Use
  Company Number: 803767758

PATIENT
  Age: 16 Year
  Sex: Male

DRUGS (22)
  1. DEXMEDETOMIDINE HYDROCHLORIDE [Suspect]
     Active Substance: DEXMEDETOMIDINE HYDROCHLORIDE
     Indication: General anaesthesia
     Dosage: AT SECOND HOUR (0.3 UG/KG,1 IN 1 HR)
     Route: 065
  2. DEXMEDETOMIDINE HYDROCHLORIDE [Suspect]
     Active Substance: DEXMEDETOMIDINE HYDROCHLORIDE
     Indication: Analgesic therapy
     Dosage: AT THIRD HOUR (0.3 UG/KG,1 IN 1 HR)
     Route: 065
  3. DEXMEDETOMIDINE HYDROCHLORIDE [Suspect]
     Active Substance: DEXMEDETOMIDINE HYDROCHLORIDE
     Dosage: AT FOURTH HOUR (0.2 UG/KG,1 IN 1 HR)
     Route: 065
  4. PROPOFOL [Suspect]
     Active Substance: PROPOFOL
     Indication: General anaesthesia
     Dosage: INDUCTION STRENGTH: 10 MG/ML (200 MG)
     Route: 065
  5. PROPOFOL [Suspect]
     Active Substance: PROPOFOL
     Indication: Maintenance of anaesthesia
     Dosage: FIRST HOUR STRENGTH: 10 MG/ML (100 MG)
     Route: 065
  6. PROPOFOL [Suspect]
     Active Substance: PROPOFOL
     Indication: Induction of anaesthesia
     Dosage: STRENGTH: 10MG/ML, DOSE: 150-175 MCG/KG/MIN AT FIRST HOUR (1 IN 1 MIN)
     Route: 065
  7. PROPOFOL [Suspect]
     Active Substance: PROPOFOL
     Dosage: STRENGTH: 10MG/ML, DOSE: 150-175 MCG/KG/MIN AT SECOND HOUR (1 IN 1 MIN)
     Route: 065
  8. PROPOFOL [Suspect]
     Active Substance: PROPOFOL
     Dosage: STRENGTH: 10MG/ML, DOSE: 150 MCG/KG/MIN AT THIRD HOUR (150 UG/KG,1 IN 1 MIN)
     Route: 065
  9. PROPOFOL [Suspect]
     Active Substance: PROPOFOL
     Dosage: STRENGTH: 10MG/ML, DOSE: 150 MCG/KG/MIN AT FOURTH HOUR (150 UG/KG,1 IN 1 MIN)
     Route: 065
  10. PROPOFOL [Suspect]
     Active Substance: PROPOFOL
     Dosage: STRENGTH: 10MG/ML, DOSE: 150 MCG/KG/MIN AT FIFTH HOUR (150 UG/KG,1 IN 1 MIN)
     Route: 065
  11. PROPOFOL [Suspect]
     Active Substance: PROPOFOL
     Dosage: STRENGTH: 10MG/ML, DOSE: 80-150 MCG/KG/MIN AT SIXTH HOUR (1 IN 1 MIN)
     Route: 065
  12. PROPOFOL [Suspect]
     Active Substance: PROPOFOL
     Dosage: STRENGTH: 10MG/ML, DOSE: 80 MCG/KG/MIN AT SEVENTH HOUR (80 UG/KG,1 IN 1 MIN)
     Route: 065
  13. REMIFENTANIL [Suspect]
     Active Substance: REMIFENTANIL
     Indication: Maintenance of anaesthesia
     Dosage: DOSE: 0.2MC/KG/H AT INDUCTION (1 IN 1 HR)
     Route: 065
  14. REMIFENTANIL [Suspect]
     Active Substance: REMIFENTANIL
     Dosage: DOSE: 0.25-0.3 MC/KG/H AT FIRST HOUR (1 IN 1 HR)
     Route: 065
  15. REMIFENTANIL [Suspect]
     Active Substance: REMIFENTANIL
     Dosage: DOSE: 0.3 MC/KG/H AT SECOND HOUR (1 IN 1 HR)
     Route: 065
  16. REMIFENTANIL [Suspect]
     Active Substance: REMIFENTANIL
     Dosage: DOSE: 0.3 MC/KG/H AT THIRD HOUR (1 IN 1 HR)
     Route: 065
  17. REMIFENTANIL [Suspect]
     Active Substance: REMIFENTANIL
     Dosage: DOSE: 0.3 MC/KG/H AT FOURTH HOUR (1 IN 1 HR)
     Route: 065
  18. REMIFENTANIL [Suspect]
     Active Substance: REMIFENTANIL
     Dosage: DOSE: 0.3 MC/KG/H AT FIFTH HOUR (1 IN 1 HR)
     Route: 065
  19. REMIFENTANIL [Suspect]
     Active Substance: REMIFENTANIL
     Dosage: DOSE: 0.3 MC/KG/H AT SIXTH HOUR (1 IN 1 HR)
     Route: 065
  20. REMIFENTANIL [Suspect]
     Active Substance: REMIFENTANIL
     Dosage: DOSE: 0.3 MC/KG/H AT SEVENTH HOUR (1 IN 1 HR)
     Route: 065
  21. SEVOFLURANE [Suspect]
     Active Substance: SEVOFLURANE
     Indication: Maintenance of anaesthesia
     Dosage: AT FIRST H 0.2-0.6, 2NF HOUR 0.4-0.5, 3RD HOUR 0.2-0.3, 4TH HOUR 0.1, 5TH HOUR 0.3-0.5, 6TH HOUR 0.5
     Route: 065
  22. SEVOFLURANE [Suspect]
     Active Substance: SEVOFLURANE
     Indication: General anaesthesia

REACTIONS (3)
  - Diabetes insipidus [Recovered/Resolved]
  - Product use in unapproved indication [Unknown]
  - Product administered to patient of inappropriate age [Unknown]
